FAERS Safety Report 4886142-5 (Version None)
Quarter: 2006Q1

REPORT INFORMATION
  Report Type: 
  Country: None (occurrence: None)
  Receive Date: 20060118
  Receipt Date: 20060118
  Transmission Date: 20060701
  Serious: Yes (Life-Threatening)
  Sender: FDA-Public Use
  Company Number: None

PATIENT
  Age: 86 Year
  Sex: Female
  Weight: 101 kg

DRUGS (17)
  1. MIDAZOLAM [Suspect]
     Indication: SEDATION
     Dosage: 2 MG 1V X 1
     Dates: start: 20051022
  2. DILTIAZEM HCL [Concomitant]
  3. ADVAIR DISKUS 100/50 [Concomitant]
  4. ACETAMINOPHEN [Concomitant]
  5. COMBIVENT [Concomitant]
  6. IRON [Concomitant]
  7. GABAPENTIN [Concomitant]
  8. LEVOTHYROXINE SODIUM [Concomitant]
  9. LISINOPRIL [Concomitant]
  10. MORPHINE [Concomitant]
  11. CALCIUM GLUCONATE [Concomitant]
  12. POTASSIUM [Concomitant]
  13. PREVACID [Concomitant]
  14. ZAROXOLYN [Concomitant]
  15. LASIX [Concomitant]
  16. PREDNISONE [Concomitant]
  17. SENNA [Concomitant]

REACTIONS (3)
  - BLOOD PRESSURE DECREASED [None]
  - LOSS OF CONSCIOUSNESS [None]
  - OXYGEN SATURATION DECREASED [None]
